FAERS Safety Report 8411577-3 (Version None)
Quarter: 2012Q2

REPORT INFORMATION
  Report Type: 
  Country: None (occurrence: None)
  Receive Date: 20120605
  Receipt Date: 20120509
  Transmission Date: 20120825
  Serious: No
  Sender: FDA-Public Use
  Company Number: US-AMGEN-USASP2012029609

PATIENT
  Age: 14 Year
  Sex: Female

DRUGS (4)
  1. ENBREL [Suspect]
     Indication: RHEUMATOID ARTHRITIS
     Dosage: 50 MG, QWK
     Dates: start: 20120401
  2. FOLIC ACID [Concomitant]
     Dosage: UNK
  3. MELOXICAM [Concomitant]
     Dosage: 2 MG, UNK
  4. METHOTREXATE [Concomitant]
     Dosage: 1 MG, UNK

REACTIONS (1)
  - INFECTIOUS MONONUCLEOSIS [None]
